FAERS Safety Report 9246412 (Version 5)
Quarter: 2013Q2

REPORT INFORMATION
  Report Type: Spontaneous
  Country: US (occurrence: US)
  Receive Date: 20130422
  Receipt Date: 20130610
  Transmission Date: 20140414
  Serious: Yes (Death, Hospitalization, Other)
  Sender: FDA-Public Use
  Company Number: US-BAXTER-2013BAX014361

PATIENT
  Age: 69 Year
  Sex: Male

DRUGS (2)
  1. DIANEAL LOW CALCIUM [Suspect]
     Indication: PERITONEAL DIALYSIS
     Route: 033
     Dates: end: 20130518
  2. EXTRANEAL [Suspect]
     Indication: PERITONEAL DIALYSIS
     Route: 033
     Dates: end: 20130518

REACTIONS (10)
  - Skin lesion [Fatal]
  - Peritoneal dialysis complication [Fatal]
  - Oesophageal mass [Fatal]
  - Hypophagia [Fatal]
  - Fluid intake reduced [Fatal]
  - Ulcer [Recovering/Resolving]
  - Wrist fracture [Recovering/Resolving]
  - Peripheral vascular disorder [Unknown]
  - Gait disturbance [Unknown]
  - Altered state of consciousness [Unknown]
